FAERS Safety Report 4563534-5 (Version None)
Quarter: 2005Q1

REPORT INFORMATION
  Report Type: 
  Country: None (occurrence: None)
  Receive Date: 20050128
  Receipt Date: 20040827
  Transmission Date: 20050727
  Serious: No
  Sender: FDA-Public Use
  Company Number: US-GLAXOSMITHKLINE-A0523829A

PATIENT
  Sex: Male

DRUGS (4)
  1. WELLBUTRIN [Suspect]
     Indication: DEPRESSION
     Dosage: .5TAB PER DAY
     Route: 048
  2. ADDERALL 5 [Concomitant]
  3. VALIUM [Concomitant]
  4. VICODIN [Concomitant]

REACTIONS (4)
  - LETHARGY [None]
  - SOMNOLENCE [None]
  - THINKING ABNORMAL [None]
  - THROAT IRRITATION [None]
